FAERS Safety Report 24960830 (Version 1)
Quarter: 2025Q1

REPORT INFORMATION
  Report Type: Spontaneous
  Country: IT (occurrence: IT)
  Receive Date: 20250212
  Receipt Date: 20250212
  Transmission Date: 20250408
  Serious: Yes (Hospitalization)
  Sender: SANDOZ
  Company Number: None

PATIENT
  Age: 45 Year
  Sex: Male
  Weight: 150 kg

DRUGS (1)
  1. NOVASTAN [Suspect]
     Active Substance: ARGATROBAN
     Indication: Lung assist device therapy
     Route: 065
     Dates: start: 20241118, end: 20241120

REACTIONS (3)
  - Haemolysis [Recovering/Resolving]
  - Hyperbilirubinaemia [Recovering/Resolving]
  - Off label use [Recovering/Resolving]

NARRATIVE: CASE EVENT DATE: 20241118
